FAERS Safety Report 5533112-X (Version None)
Quarter: 2007Q4

REPORT INFORMATION
  Report Type: 
  Country: None (occurrence: None)
  Receive Date: 20071130
  Receipt Date: 20071130
  Transmission Date: 20080405
  Serious: No
  Sender: FDA-Public Use
  Company Number: None

PATIENT
  Age: 60 Year
  Sex: Female
  Weight: 68.0396 kg

DRUGS (3)
  1. DILANTIN [Suspect]
     Indication: CONVULSION
     Dosage: 200MG  DAILY   PO
     Route: 048
  2. APAP WITH CODEINE [Concomitant]
  3. LORAZEPAM [Concomitant]

REACTIONS (2)
  - FLUSHING [None]
  - PALPITATIONS [None]
